FAERS Safety Report 12059318 (Version 1)
Quarter: 2016Q1

REPORT INFORMATION
  Report Type: Spontaneous
  Country: US (occurrence: None)
  Receive Date: 20160209
  Receipt Date: 20160209
  Transmission Date: 20160526
  Serious: Yes (Other)
  Sender: FDA-Public Use
  Company Number: None

PATIENT
  Age: 76 Year
  Sex: Female

DRUGS (1)
  1. XELJANZ [Suspect]
     Active Substance: TOFACITINIB CITRATE
     Indication: MALAISE
     Route: 048
     Dates: end: 20150129

REACTIONS (2)
  - Diarrhoea [None]
  - Pneumonia [None]

NARRATIVE: CASE EVENT DATE: 20151220
